FAERS Safety Report 8231191-2 (Version None)
Quarter: 2012Q1

REPORT INFORMATION
  Report Type: 
  Country: None (occurrence: None)
  Receive Date: 20120323
  Receipt Date: 20120321
  Transmission Date: 20120608
  Serious: Yes (Death, Hospitalization)
  Sender: FDA-Public Use
  Company Number: JM-B.I. PHARMACEUTICALS,INC./RIDGEFIELD-2012-CN-00627CN

PATIENT
  Age: 89 Year
  Sex: Female

DRUGS (1)
  1. MICARDIS [Suspect]
     Dates: start: 20040101

REACTIONS (1)
  - MYOCARDIAL INFARCTION [None]
